FAERS Safety Report 9022218 (Version 2)
Quarter: 2013Q3

REPORT INFORMATION
  Report Type: Report from Study
  Country: JP (occurrence: JP)
  Receive Date: 20130118
  Receipt Date: 20130729
  Transmission Date: 20140515
  Serious: Yes (Other)
  Sender: FDA-Public Use
  Company Number: JP-VERTEX PHARMACEUTICALS INC.-2013-000781

PATIENT
  Age: 41 Year
  Sex: Male

DRUGS (9)
  1. VX-950 (TELAPREVIR) [Suspect]
     Indication: CHRONIC HEPATITIS C
     Dosage: 2250 MG, QD
     Route: 048
     Dates: start: 20120428, end: 20120719
  2. RIBAVIRIN [Suspect]
     Indication: CHRONIC HEPATITIS C
     Dosage: 800 MG, QD
     Route: 048
     Dates: start: 20120428, end: 20120524
  3. RIBAVIRIN [Suspect]
     Dosage: 600 MG, QD
     Route: 048
     Dates: start: 20120525, end: 20120823
  4. RIBAVIRIN [Suspect]
     Dosage: 800 MG, QD
     Route: 048
     Dates: start: 20120824, end: 20120920
  5. RIBAVIRIN [Suspect]
     Dosage: 600 MG, QD
     Route: 048
     Dates: start: 20120921, end: 20121011
  6. RIBAVIRIN [Suspect]
     Dosage: 800 MG, QD
     Route: 048
     Dates: start: 20121012
  7. PEGINTERFERON ALFA-2B [Suspect]
     Indication: CHRONIC HEPATITIS C
     Dosage: 1.37 ?G/KG, QW
     Route: 058
     Dates: start: 20120428, end: 20120927
  8. PEGINTERFERON ALFA-2B [Suspect]
     Dosage: 0.7 ?G/KG, QW
     Route: 058
     Dates: start: 20120928, end: 20121011
  9. PEGINTERFERON ALFA-2B [Suspect]
     Dosage: 1.37 ?G/KG, QW
     Route: 058
     Dates: start: 20121012

REACTIONS (1)
  - White blood cell count decreased [Recovered/Resolved]
